FAERS Safety Report 6879436-5 (Version None)
Quarter: 2010Q3

REPORT INFORMATION
  Report Type: 
  Country: None (occurrence: None)
  Receive Date: 20100728
  Receipt Date: 20100722
  Transmission Date: 20110219
  Serious: Yes (Death)
  Sender: FDA-Public Use
  Company Number: PHHO2010GB09434

PATIENT

DRUGS (3)
  1. SANDOSTATIN LAR [Suspect]
     Indication: METASTATIC CARCINOID TUMOUR
     Dosage: UNK
     Route: 030
     Dates: end: 20100208
  2. YTTRIUM (90 Y) [Concomitant]
  3. ERYTHROMYCIN [Concomitant]

REACTIONS (2)
  - CELLULITIS [None]
  - SEPSIS [None]
